FAERS Safety Report 9702843 (Version 2)
Quarter: 2014Q2

REPORT INFORMATION
  Report Type: Spontaneous
  Country: US (occurrence: US)
  Receive Date: 20131121
  Receipt Date: 20140506
  Transmission Date: 20141212
  Serious: Yes (Hospitalization)
  Sender: FDA-Public Use
  Company Number: US-B.I. PHARMACEUTICALS,INC./RIDGEFIELD-2013-BI-37683BP

PATIENT
  Sex: Female
  Weight: 68.04 kg

DRUGS (11)
  1. PRADAXA [Suspect]
     Indication: ATRIAL FIBRILLATION
     Dosage: 150 MG
     Route: 048
     Dates: start: 20101231, end: 20111113
  2. PRADAXA [Suspect]
     Indication: ANTICOAGULANT THERAPY
  3. LEVOXYL [Concomitant]
     Dosage: 25 MG
     Route: 048
  4. LASIX [Concomitant]
     Dosage: 20 MG
     Route: 048
  5. POTASSIUM CHLORIDE [Concomitant]
     Dosage: 20 MEQ
     Route: 048
  6. NITROSTAT [Concomitant]
     Route: 060
  7. PANTOPRAZOLE [Concomitant]
     Dosage: 40 MG
     Route: 048
  8. PRAZOSIN [Concomitant]
     Dosage: 2 MG
     Route: 048
  9. LISINOPRIL [Concomitant]
     Dosage: 25 MG
     Route: 048
  10. VITAMIN D3 [Concomitant]
     Dosage: 1000 U
     Route: 065
  11. FLUTICASONE PROP [Concomitant]
     Dosage: 100 MCG
     Route: 065

REACTIONS (4)
  - Gastrointestinal haemorrhage [Recovered/Resolved]
  - Anaemia [Unknown]
  - Renal failure acute [Unknown]
  - Epistaxis [Unknown]
